FAERS Safety Report 8290103-6 (Version None)
Quarter: 2012Q2

REPORT INFORMATION
  Report Type: 
  Country: None (occurrence: None)
  Receive Date: 20120412
  Receipt Date: 20120412
  Transmission Date: 20120825
  Serious: No
  Sender: FDA-Public Use
  Company Number: None

PATIENT
  Sex: Male
  Weight: 110 kg

DRUGS (4)
  1. LEUCOVORIN CALCIUM [Suspect]
     Dosage: 932 MG
  2. ELOXATIN [Suspect]
     Dosage: 198.1 MG
  3. FLUOROURACIL [Suspect]
     Dosage: 6524 MG, SEE THE IMAGE
     Dates: start: 20051114, end: 20051116
  4. BEVACIZUMAB (RHUMAB VEGF) [Suspect]
     Dosage: 548.9 MG

REACTIONS (2)
  - FATIGUE [None]
  - JUGULAR VEIN THROMBOSIS [None]
